FAERS Safety Report 14226955 (Version 1)
Quarter: 2017Q4

REPORT INFORMATION
  Report Type: Spontaneous
  Country: SI (occurrence: SI)
  Receive Date: 20171127
  Receipt Date: 20171127
  Transmission Date: 20180321
  Serious: Yes (Other)
  Sender: FDA-Public Use
  Company Number: SI-JNJFOC-20171129884

PATIENT
  Age: 82 Year
  Sex: Female

DRUGS (12)
  1. GLIQUIDONE [Concomitant]
     Active Substance: GLIQUIDONE
     Route: 065
  2. ESCITALOPRAM [Concomitant]
     Active Substance: ESCITALOPRAM OXALATE
     Dosage: DOSAGE: DAILY DOSE 10 MG
     Route: 065
  3. RAMIPRIL. [Concomitant]
     Active Substance: RAMIPRIL
     Route: 065
  4. TRAMADOL. [Concomitant]
     Active Substance: TRAMADOL
     Dosage: DOSAGE: UPTO 400 MG DAILY
     Route: 065
  5. DENOSUMAB [Concomitant]
     Active Substance: DENOSUMAB
     Dosage: DOSAGE: ONCE PER 6 MONTHS
     Route: 058
  6. VITAMINE D [Concomitant]
     Dosage: DOSAGE: UNKNOWN
     Route: 065
     Dates: start: 201709
  7. FEMARA [Concomitant]
     Active Substance: LETROZOLE
     Route: 065
  8. XARELTO [Suspect]
     Active Substance: RIVAROXABAN
     Indication: ATRIAL FIBRILLATION
     Route: 048
     Dates: start: 201708
  9. METILDIGOXIN [Concomitant]
     Active Substance: METILDIGOXIN
     Route: 065
  10. CARVEDILOL. [Concomitant]
     Active Substance: CARVEDILOL
     Route: 065
  11. LESCOL [Concomitant]
     Active Substance: FLUVASTATIN SODIUM
     Dosage: DOSAGE: UNKNOWN
     Route: 065
  12. METAMIZOLE [Concomitant]
     Active Substance: METAMIZOLE
     Dosage: DOSAGE: UPTO 3X500 MG
     Route: 065

REACTIONS (3)
  - Lumbar vertebral fracture [Unknown]
  - Back pain [Unknown]
  - Sciatica [Unknown]

NARRATIVE: CASE EVENT DATE: 201709
